FAERS Safety Report 8148546-7 (Version None)
Quarter: 2012Q1

REPORT INFORMATION
  Report Type: 
  Country: None (occurrence: None)
  Receive Date: 20120218
  Receipt Date: 20110610
  Transmission Date: 20120608
  Serious: No
  Sender: FDA-Public Use
  Company Number: US-ALLERGAN-1107951US

PATIENT
  Age: 44 Year
  Sex: Female

DRUGS (4)
  1. BOTOX COSMETIC [Suspect]
     Indication: SKIN WRINKLING
     Dosage: 156 UNITS, SINGLE
     Route: 030
     Dates: start: 20100616, end: 20100616
  2. BOTOX COSMETIC [Suspect]
     Dosage: 108 UNK, UNK
     Dates: start: 20101101, end: 20101101
  3. BOTOX COSMETIC [Suspect]
     Dosage: UNK
     Dates: start: 20100301, end: 20100301
  4. BOTOX COSMETIC [Suspect]
     Dosage: UNK
     Dates: start: 20100701, end: 20100701

REACTIONS (1)
  - ACNE [None]
